FAERS Safety Report 13301989 (Version 1)
Quarter: 2017Q1

REPORT INFORMATION
  Report Type: Spontaneous
  Country: US (occurrence: US)
  Receive Date: 20170307
  Receipt Date: 20170307
  Transmission Date: 20170428
  Serious: Yes (Hospitalization, Other)
  Sender: FDA-Public Use
  Company Number: US-MYLANLABS-2017M1013607

PATIENT

DRUGS (3)
  1. DEXTROMETHORPHAN W/PROMETHAZINE [Concomitant]
     Indication: BRONCHITIS
     Route: 050
  2. SALBUTAMOL [Concomitant]
     Active Substance: ALBUTEROL
     Indication: PRODUCT USED FOR UNKNOWN INDICATION
     Dosage: AS NEEDED
     Route: 065
  3. AZITHROMYCIN ANHYDROUS. [Suspect]
     Active Substance: AZITHROMYCIN ANHYDROUS
     Indication: BRONCHITIS
     Dosage: 5 DAY COURSE
     Route: 048

REACTIONS (4)
  - Fall [Recovered/Resolved]
  - Syncope [Recovered/Resolved]
  - Acute hepatic failure [Recovered/Resolved]
  - Hepato-lenticular degeneration [Recovered/Resolved]
